FAERS Safety Report 5844580-8 (Version None)
Quarter: 2008Q3

REPORT INFORMATION
  Report Type: 
  Country: None (occurrence: None)
  Receive Date: 20080814
  Receipt Date: 20080805
  Transmission Date: 20090109
  Serious: Yes (Other)
  Sender: FDA-Public Use
  Company Number: GB-RANBAXY-2008RR-12447

PATIENT

DRUGS (8)
  1. TRAMADOL HCL [Suspect]
     Indication: PAIN
  2. CODEINE SUL TAB [Suspect]
  3. ACETAMINOPHEN [Concomitant]
     Indication: PAIN
  4. OXYCODONE HCL [Concomitant]
  5. BUSCOPAN [Concomitant]
     Indication: PAIN
  6. ALFENTANIL [Concomitant]
     Indication: PAIN
     Route: 058
  7. FENTANYL [Concomitant]
     Indication: PAIN
  8. HYOSCINE HBR HYT [Concomitant]
     Indication: ABDOMINAL PAIN

REACTIONS (2)
  - ABDOMINAL PAIN [None]
  - ANGIOEDEMA [None]
